FAERS Safety Report 9555453 (Version 2)
Quarter: 2013Q4

REPORT INFORMATION
  Report Type: Spontaneous
  Country: BR (occurrence: BR)
  Receive Date: 20130926
  Receipt Date: 20131224
  Transmission Date: 20140711
  Serious: Yes (Death, Hospitalization, Other)
  Sender: FDA-Public Use
  Company Number: BR-JNJFOC-20130913747

PATIENT
  Age: 81 Year
  Sex: Female

DRUGS (18)
  1. XARELTO [Suspect]
     Indication: PULMONARY EMBOLISM
     Route: 048
     Dates: start: 201306
  2. XARELTO [Suspect]
     Indication: THROMBOSIS PROPHYLAXIS
     Route: 048
     Dates: start: 201306
  3. XARELTO [Suspect]
     Indication: DEEP VEIN THROMBOSIS
     Route: 048
     Dates: start: 201306
  4. TOPIRAMATE [Concomitant]
     Route: 048
  5. PANTOPRAZOLE [Concomitant]
     Route: 065
  6. CARVEDILOL [Concomitant]
     Route: 065
  7. ISOSORBIDE [Concomitant]
     Route: 065
  8. LOSARTAN [Concomitant]
     Route: 065
  9. CARBAMAZEPINE [Concomitant]
     Route: 065
  10. TAMOXIFEN [Concomitant]
     Route: 065
  11. ALENDRONATE SODIUM [Concomitant]
     Route: 065
  12. OS-CAL D [Concomitant]
     Route: 065
  13. ATORVASTATIN [Concomitant]
     Route: 065
  14. SERETIDE [Concomitant]
     Route: 065
  15. LASILACTONA [Concomitant]
     Route: 065
  16. BAMIFIX [Concomitant]
     Route: 065
  17. SIFROL [Concomitant]
     Route: 065
  18. PINAVERIUM BROMIDE [Concomitant]
     Route: 065

REACTIONS (12)
  - Diverticulum intestinal haemorrhagic [Unknown]
  - Disseminated intravascular coagulation [Unknown]
  - Death [Fatal]
  - Hypotension [Unknown]
  - Shock [Unknown]
  - Sepsis [Unknown]
  - Multi-organ failure [Unknown]
  - Blood blister [Unknown]
  - Haematuria [Unknown]
  - Pain [Unknown]
  - Spontaneous haematoma [Unknown]
  - Ecchymosis [Unknown]
